FAERS Safety Report 9618042 (Version 2)
Quarter: 2013Q4

REPORT INFORMATION
  Report Type: Report from Study
  Country: RU (occurrence: RU)
  Receive Date: 20131012
  Receipt Date: 20131017
  Transmission Date: 20140711
  Serious: Yes (Other)
  Sender: FDA-Public Use
  Company Number: RU-ROCHE-1288289

PATIENT
  Age: 73 Year
  Sex: Female
  Weight: 55 kg

DRUGS (15)
  1. AVASTIN [Suspect]
     Indication: RECTAL CANCER
     Route: 065
     Dates: start: 20130514, end: 20131007
  2. AVASTIN [Suspect]
     Indication: METASTASES TO OVARY
  3. AVASTIN [Suspect]
     Indication: METASTASES TO LUNG
  4. 5-FU [Concomitant]
     Indication: RECTAL CANCER
     Dosage: 1-2 DAYS
     Route: 042
     Dates: start: 20130514, end: 20130731
  5. 5-FU [Concomitant]
     Indication: METASTASES TO OVARY
     Dosage: 1-3 DAYS
     Route: 042
     Dates: start: 20130514, end: 20130731
  6. 5-FU [Concomitant]
     Indication: METASTASES TO LUNG
  7. OXALIPLATIN [Concomitant]
     Indication: RECTAL CANCER
     Dosage: 1 DAY
     Route: 065
     Dates: start: 20130514, end: 20130731
  8. OXALIPLATIN [Concomitant]
     Indication: METASTASES TO OVARY
  9. OXALIPLATIN [Concomitant]
     Indication: METASTASES TO LUNG
  10. LEUCOVORIN [Concomitant]
     Indication: RECTAL CANCER
     Dosage: 1,2 DAYS
     Route: 041
     Dates: start: 20130514, end: 20130607
  11. LEUCOVORIN [Concomitant]
     Indication: METASTASES TO OVARY
  12. LEUCOVORIN [Concomitant]
     Indication: METASTASES TO LUNG
  13. IRINOTECAN [Concomitant]
     Indication: RECTAL CANCER
     Dosage: 1, 8, 15 DAYS
     Route: 065
     Dates: start: 20130731, end: 20131007
  14. IRINOTECAN [Concomitant]
     Indication: METASTASES TO OVARY
  15. IRINOTECAN [Concomitant]
     Indication: METASTASES TO LUNG

REACTIONS (1)
  - Disease progression [Not Recovered/Not Resolved]
